FAERS Safety Report 7865050-1 (Version None)
Quarter: 2011Q4

REPORT INFORMATION
  Report Type: 
  Country: None (occurrence: None)
  Receive Date: 20111028
  Receipt Date: 20101006
  Transmission Date: 20120403
  Serious: No
  Sender: FDA-Public Use
  Company Number: US-GLAXOSMITHKLINE-A0885235A

PATIENT
  Age: 38 Year
  Sex: Female
  Weight: 61.8 kg

DRUGS (2)
  1. ADVAIR DISKUS 100/50 [Suspect]
     Indication: COUGH
     Dosage: 1PUFF PER DAY
     Route: 055
     Dates: start: 20101005, end: 20101005
  2. QVAR 40 [Concomitant]

REACTIONS (7)
  - DYSPNOEA [None]
  - CHEST DISCOMFORT [None]
  - HEART RATE INCREASED [None]
  - PAINFUL RESPIRATION [None]
  - NAUSEA [None]
  - DRUG ADMINISTRATION ERROR [None]
  - ILL-DEFINED DISORDER [None]
